FAERS Safety Report 24531459 (Version 1)
Quarter: 2024Q4

REPORT INFORMATION
  Report Type: Report from Study
  Country: US (occurrence: US)
  Receive Date: 20241022
  Receipt Date: 20241022
  Transmission Date: 20250115
  Serious: No
  Sender: ROCHE
  Company Number: US-ROCHE-2499996

PATIENT
  Age: 15 Year
  Sex: Male

DRUGS (12)
  1. PULMOZYME [Suspect]
     Active Substance: DORNASE ALFA
     Indication: Primary ciliary dyskinesia
     Route: 065
     Dates: start: 2009, end: 2016
  2. PULMOZYME [Suspect]
     Active Substance: DORNASE ALFA
     Indication: Bronchiectasis
     Route: 065
     Dates: start: 2011, end: 2016
  3. PULMOZYME [Suspect]
     Active Substance: DORNASE ALFA
     Indication: Respiratory tract malformation
     Dosage: NEBULIZE THE CONTENTS OF 1 VIAL(S) 2.5 MG EVERY DAY
     Route: 065
  4. XOPENEX [Concomitant]
     Active Substance: LEVALBUTEROL HYDROCHLORIDE
  5. SODIUM CHLORIDE [Concomitant]
     Active Substance: SODIUM CHLORIDE
  6. AZITHROMYCIN [Concomitant]
     Active Substance: AZITHROMYCIN
     Route: 048
  7. OCUFLOX [Concomitant]
     Active Substance: OFLOXACIN
  8. TYLENOL [Concomitant]
     Active Substance: ACETAMINOPHEN
  9. IBUPROFEN [Concomitant]
     Active Substance: IBUPROFEN
     Indication: Pyrexia
  10. FLONASE [Concomitant]
     Active Substance: FLUTICASONE PROPIONATE
  11. CIPRODEX (UNITED STATES) [Concomitant]
  12. ASMANEX HFA [Concomitant]
     Active Substance: MOMETASONE FUROATE

REACTIONS (2)
  - Off label use [Unknown]
  - No adverse event [Unknown]
